FAERS Safety Report 9598194 (Version 1)
Quarter: 2013Q4

REPORT INFORMATION
  Report Type: Spontaneous
  Country: US (occurrence: US)
  Receive Date: 20131004
  Receipt Date: 20131004
  Transmission Date: 20140711
  Serious: No
  Sender: FDA-Public Use
  Company Number: US-AMGEN-USASP2013022973

PATIENT
  Age: 55 Year
  Sex: Male

DRUGS (7)
  1. ENBREL [Suspect]
     Indication: PRODUCT USED FOR UNKNOWN INDICATION
     Dosage: 50 MG, QWK
     Route: 058
     Dates: start: 20081114, end: 20101208
  2. EXCEDRIN                           /00110301/ [Concomitant]
  3. METHOTREXATE [Concomitant]
     Dosage: 2.5 MG, UNK
  4. OSTEO BI-FLEX [Concomitant]
     Dosage: 250-200
  5. FISH OIL [Concomitant]
     Dosage: UNK
  6. TUMS                               /00193601/ [Concomitant]
     Dosage: 500 MG, UNK
  7. ALKA SELTZER                       /00002701/ [Concomitant]
     Dosage: 500 MG, UNK

REACTIONS (1)
  - Drug ineffective [Unknown]
